FAERS Safety Report 5304635-3 (Version None)
Quarter: 2007Q2

REPORT INFORMATION
  Report Type: 
  Country: None (occurrence: None)
  Receive Date: 20070423
  Receipt Date: 20070413
  Transmission Date: 20071010
  Serious: Yes (Life-Threatening, Other)
  Sender: FDA-Public Use
  Company Number: GB-GLAXOSMITHKLINE-B0467362A

PATIENT
  Age: 35 Year
  Sex: Female

DRUGS (8)
  1. ZANTAC [Suspect]
     Indication: POSTOPERATIVE CARE
     Route: 042
     Dates: start: 20070115, end: 20070116
  2. CEFUROXIME [Concomitant]
     Indication: POSTOPERATIVE CARE
     Route: 042
     Dates: start: 20070115
  3. CYCLIZINE [Concomitant]
     Indication: POSTOPERATIVE CARE
     Dosage: 30MG AS REQUIRED
     Route: 042
     Dates: start: 20070115
  4. METRONIDAZOLE [Concomitant]
     Indication: POSTOPERATIVE CARE
     Route: 042
     Dates: start: 20070115
  5. ONDANSETRON [Concomitant]
     Indication: POSTOPERATIVE CARE
     Dosage: 4MG AS REQUIRED
     Route: 042
     Dates: start: 20070115
  6. PARACETAMOL [Concomitant]
     Indication: POSTOPERATIVE CARE
     Route: 042
     Dates: start: 20070115
  7. TINZAPARIN [Concomitant]
     Indication: POSTOPERATIVE CARE
     Route: 058
     Dates: start: 20070115
  8. PARACETAMOL [Concomitant]
     Route: 042
     Dates: start: 20070115

REACTIONS (8)
  - APHASIA [None]
  - HYPERSENSITIVITY [None]
  - LARYNGOSPASM [None]
  - MIOSIS [None]
  - MYDRIASIS [None]
  - OXYGEN SATURATION DECREASED [None]
  - PHARYNGEAL OEDEMA [None]
  - VISION BLURRED [None]
